FAERS Safety Report 8839352 (Version 1)
Quarter: 2012Q4

REPORT INFORMATION
  Report Type: 
  Country: BR (occurrence: BR)
  Receive Date: 20121015
  Receipt Date: 20121015
  Transmission Date: 20130627
  Serious: Yes (Other)
  Sender: FDA-Public Use
  Company Number: BR-JNJFOC-20121004089

PATIENT
  Sex: Female

DRUGS (6)
  1. INVEGA SUSTENNA [Suspect]
     Indication: BIPOLAR DISORDER
     Route: 030
  2. INVEGA SUSTENNA [Suspect]
     Indication: BIPOLAR DISORDER
     Route: 030
     Dates: start: 201208, end: 20120921
  3. INVEGA SUSTENNA [Suspect]
     Indication: BIPOLAR DISORDER
     Route: 030
     Dates: end: 201208
  4. INVEGA SUSTENNA [Suspect]
     Indication: BIPOLAR DISORDER
     Route: 030
     Dates: start: 201204
  5. LEXAPRO [Suspect]
     Indication: BIPOLAR DISORDER
     Route: 065
     Dates: start: 2012
  6. LEXAPRO [Suspect]
     Indication: BIPOLAR DISORDER
     Route: 065

REACTIONS (7)
  - Gait disturbance [Recovering/Resolving]
  - Expressive language disorder [Unknown]
  - Bradyphrenia [Recovering/Resolving]
  - Muscle rigidity [Recovering/Resolving]
  - Tremor [Recovering/Resolving]
  - Balance disorder [Recovering/Resolving]
  - Malaise [Unknown]
